FAERS Safety Report 5063992-6 (Version None)
Quarter: 2006Q3

REPORT INFORMATION
  Report Type: 
  Country: None (occurrence: None)
  Receive Date: 20060703
  Receipt Date: 20050901
  Transmission Date: 20061208
  Serious: No
  Sender: FDA-Public Use
  Company Number: 2005S1009037

PATIENT
  Age: 33 Year
  Sex: Male

DRUGS (6)
  1. CLOZAPINE [Suspect]
     Indication: SCHIZOPHRENIA
     Dosage: 800 MG;HS;PO
     Route: 048
     Dates: start: 20000901
  2. CLONAZEPAM [Concomitant]
  3. ARIPIPRAZOLE [Concomitant]
  4. ALPRAZOLAM [Concomitant]
  5. OLANZAPINE [Concomitant]
  6. FLUOXETINE HYDROCHLORIDE [Concomitant]

REACTIONS (1)
  - LEUKOPENIA [None]
